FAERS Safety Report 11523875 (Version 1)
Quarter: 2015Q3

REPORT INFORMATION
  Report Type: Spontaneous
  Country: US (occurrence: US)
  Receive Date: 20150918
  Receipt Date: 20150918
  Transmission Date: 20151125
  Serious: Yes (Death, Other)
  Sender: FDA-Public Use
  Company Number: US-TAKEDA-TPA2011A07361

PATIENT

DRUGS (6)
  1. METFORMIN [Concomitant]
     Active Substance: METFORMIN HYDROCHLORIDE
     Dosage: 500-1500 MG, QD
     Dates: start: 1996
  2. AMARYL [Concomitant]
     Active Substance: GLIMEPIRIDE
     Dosage: UNK
     Dates: start: 2000
  3. ACTOS [Suspect]
     Active Substance: PIOGLITAZONE HYDROCHLORIDE
     Indication: TYPE 2 DIABETES MELLITUS
     Dosage: 30 MG, QD
     Route: 048
     Dates: start: 1997, end: 200701
  4. GLUCOTROL [Concomitant]
     Active Substance: GLIPIZIDE
     Dosage: 10 MG, QD
     Dates: start: 1999
  5. GLUCOPHAGE [Concomitant]
     Active Substance: METFORMIN HYDROCHLORIDE
     Dosage: 500 MG, UNK
     Dates: start: 1996
  6. GLUCOTROL [Concomitant]
     Active Substance: GLIPIZIDE
     Dosage: 10 MG, QD
     Dates: start: 1980

REACTIONS (2)
  - Bladder cancer [Unknown]
  - Death [Fatal]

NARRATIVE: CASE EVENT DATE: 20050329
